FAERS Safety Report 25528438 (Version 2)
Quarter: 2025Q3

REPORT INFORMATION
  Report Type: Spontaneous
  Country: US (occurrence: US)
  Receive Date: 20250708
  Receipt Date: 20250729
  Transmission Date: 20251021
  Serious: No
  Sender: APOTEX
  Company Number: US-APOTEX-2025AP008523

PATIENT
  Sex: Female

DRUGS (1)
  1. BUTORPHANOL TARTRATE [Suspect]
     Active Substance: BUTORPHANOL TARTRATE
     Indication: Product used for unknown indication
     Dosage: 1 DOSAGE FORM, BID (1 SPRAY IN ONE NOSTRIL TWICE DAILY)
     Route: 045

REACTIONS (2)
  - Incorrect dose administered by product [Unknown]
  - Product delivery mechanism issue [Unknown]
